FAERS Safety Report 9514529 (Version 1)
Quarter: 2013Q3

REPORT INFORMATION
  Report Type: Report from Study
  Country: US (occurrence: US)
  Receive Date: 20130911
  Receipt Date: 20130911
  Transmission Date: 20140515
  Serious: Yes (Other)
  Sender: FDA-Public Use
  Company Number: US-ROCHE-1272281

PATIENT
  Age: 52 Year
  Sex: Female

DRUGS (5)
  1. HERCEPTIN [Suspect]
     Indication: BREAST CANCER METASTATIC
     Dosage: 1L DOSE EVERY 2
     Route: 065
  2. CYTOXAN [Concomitant]
     Dosage: 1L
     Route: 065
  3. PARAPLATIN [Concomitant]
     Dosage: 1L
     Route: 065
  4. NOLVADEX [Concomitant]
     Dosage: 1L
     Route: 065
  5. TAXOTERE [Concomitant]

REACTIONS (2)
  - Febrile neutropenia [Unknown]
  - Disease progression [Unknown]
